FAERS Safety Report 18598766 (Version 5)
Quarter: 2024Q2

REPORT INFORMATION
  Report Type: Other
  Country: FR (occurrence: None)
  Receive Date: 20201210
  Receipt Date: 20240422
  Transmission Date: 20240716
  Serious: Yes (Hospitalization, Other)
  Sender: FDA-Public Use
  Company Number: FR-ROCHE-2725677

PATIENT

DRUGS (4)
  1. TOCILIZUMAB [Suspect]
     Active Substance: TOCILIZUMAB
     Indication: Polymyalgia rheumatica
     Route: 042
  2. TOCILIZUMAB [Suspect]
     Active Substance: TOCILIZUMAB
     Route: 042
  3. TOCILIZUMAB [Suspect]
     Active Substance: TOCILIZUMAB
     Indication: Polymyalgia rheumatica
     Route: 058
  4. METHOTREXATE [Concomitant]
     Active Substance: METHOTREXATE

REACTIONS (13)
  - Bacteraemia [Unknown]
  - Bursitis [Unknown]
  - Myocardial infarction [Unknown]
  - Cutaneous lymphoma [Unknown]
  - Urinary tract infection [Unknown]
  - Myocardial infarction [Unknown]
  - Cytopenia [Unknown]
  - Off label use [Unknown]
  - Neutropenia [Unknown]
  - Laboratory test abnormal [Unknown]
  - Infection [Unknown]
  - Dyslipidaemia [Unknown]
  - Hepatic function abnormal [Unknown]
